FAERS Safety Report 8272677-4 (Version None)
Quarter: 2012Q2

REPORT INFORMATION
  Report Type: 
  Country: None (occurrence: None)
  Receive Date: 20120411
  Receipt Date: 20120405
  Transmission Date: 20120825
  Serious: Yes (Other)
  Sender: FDA-Public Use
  Company Number: US-BAXTER-2012BAX002456

PATIENT
  Age: 15 Year
  Sex: Male

DRUGS (2)
  1. VANCOMYCIN [Suspect]
  2. CEFTRIAXONE [Suspect]

REACTIONS (1)
  - DRUG RASH WITH EOSINOPHILIA AND SYSTEMIC SYMPTOMS [None]
